FAERS Safety Report 19051168 (Version 1)
Quarter: 2021Q1

REPORT INFORMATION
  Report Type: Report from Study
  Country: GB (occurrence: GB)
  Receive Date: 20210324
  Receipt Date: 20210324
  Transmission Date: 20210420
  Serious: Yes (Other)
  Sender: FDA-Public Use
  Company Number: GB-PFIZER INC-2021173953

PATIENT
  Age: 11 Year
  Sex: Female

DRUGS (9)
  1. ALEMTUZUMAB [Suspect]
     Active Substance: ALEMTUZUMAB
     Indication: IMMUNOSUPPRESSION
     Dosage: 0.1 MG/KG, 1X/DAY FOR 3 DAYS FOR MATCHED SIBLING DONORS ON DAY 8 TO DAY 6
  2. CIPROFLOXACIN. [Concomitant]
     Active Substance: CIPROFLOXACIN
     Indication: PROPHYLAXIS
     Dosage: 7.5 MG/KG, 2X/DAY
  3. CICLOSPORIN [Concomitant]
     Active Substance: CYCLOSPORINE
     Indication: PROPHYLAXIS AGAINST GRAFT VERSUS HOST DISEASE
     Dosage: UNK
  4. ACICLOVIR [Concomitant]
     Active Substance: ACYCLOVIR
     Dosage: 300 ? 600 MG/M2, ONCE A DAY
     Route: 048
  5. CYCLOPHOSPHAMIDE. [Suspect]
     Active Substance: CYCLOPHOSPHAMIDE
     Indication: IMMUNOSUPPRESSION
     Dosage: 300 MG/M2, ONCE DAILY FOR 4 DAYS ON DAY 7 TO DAY 4
  6. COTRIMOXAZOLE [Concomitant]
     Active Substance: SULFAMETHOXAZOLE\TRIMETHOPRIM
     Dosage: ADJUSTED TO BODY?SURFACE AREA
  7. PENICILLIN V BASIC [Concomitant]
     Active Substance: PENICILLIN V POTASSIUM
     Dosage: 250 ? 500 MG TWICE A DAY, GIVEN LIFELONG
  8. FLUDARABINE PHOSPHATE. [Suspect]
     Active Substance: FLUDARABINE PHOSPHATE
     Indication: IMMUNOSUPPRESSION
     Dosage: 30 MG/M2, ONCE DAILY FOR 5 DAYS ON DAY ?8 TO DAY ?4
  9. IMMUNOGLOBULIN HUMAN NORMAL [Concomitant]
     Active Substance: HUMAN IMMUNOGLOBULIN G
     Dosage: 0.5 G/KG ONCE EVERY 3 WEEKS, GIVEN UNTIL RECOVERY OF CIRCULATING CD4+ T CELLS TO MORE THAN 300/UL
     Route: 042

REACTIONS (2)
  - Gastrointestinal toxicity [Unknown]
  - Respiratory failure [Unknown]
